FAERS Safety Report 23204384 (Version 2)
Quarter: 2023Q4

REPORT INFORMATION
  Report Type: Spontaneous
  Country: US (occurrence: US)
  Receive Date: 20231120
  Receipt Date: 20231213
  Transmission Date: 20240110
  Serious: Yes (Other)
  Sender: FDA-Public Use
  Company Number: US-JNJFOC-20231147924

PATIENT
  Age: 42 Year
  Sex: Female

DRUGS (32)
  1. TYLENOL [Suspect]
     Active Substance: ACETAMINOPHEN
     Indication: Pain management
     Route: 048
  2. GABAPENTIN [Suspect]
     Active Substance: GABAPENTIN
     Indication: Pain management
     Route: 048
  3. GABAPENTIN [Suspect]
     Active Substance: GABAPENTIN
     Route: 048
  4. GABAPENTIN [Suspect]
     Active Substance: GABAPENTIN
     Route: 048
  5. GABAPENTIN [Suspect]
     Active Substance: GABAPENTIN
     Route: 048
  6. OXYCODONE [Suspect]
     Active Substance: OXYCODONE
     Indication: Pain management
     Route: 065
  7. BACLOFEN [Suspect]
     Active Substance: BACLOFEN
     Indication: Pain management
     Route: 048
  8. BACLOFEN [Suspect]
     Active Substance: BACLOFEN
     Route: 048
  9. BACLOFEN [Suspect]
     Active Substance: BACLOFEN
     Route: 037
  10. METHADONE [Suspect]
     Active Substance: METHADONE HYDROCHLORIDE
     Indication: Pain management
     Route: 048
  11. METHADONE [Suspect]
     Active Substance: METHADONE HYDROCHLORIDE
     Route: 048
  12. METHADONE [Suspect]
     Active Substance: METHADONE HYDROCHLORIDE
     Route: 048
  13. METHADONE [Suspect]
     Active Substance: METHADONE HYDROCHLORIDE
     Route: 048
  14. METHADONE [Suspect]
     Active Substance: METHADONE HYDROCHLORIDE
     Route: 048
  15. METHADONE [Suspect]
     Active Substance: METHADONE HYDROCHLORIDE
     Route: 042
  16. MORPHINE [Suspect]
     Active Substance: MORPHINE
     Indication: Pain management
     Route: 037
  17. MORPHINE [Suspect]
     Active Substance: MORPHINE
     Route: 037
  18. MORPHINE [Suspect]
     Active Substance: MORPHINE
     Route: 037
  19. MORPHINE [Suspect]
     Active Substance: MORPHINE
     Route: 037
  20. MORPHINE [Suspect]
     Active Substance: MORPHINE
     Route: 037
  21. MORPHINE [Suspect]
     Active Substance: MORPHINE
     Route: 037
  22. MORPHINE [Suspect]
     Active Substance: MORPHINE
     Route: 037
  23. MORPHINE [Suspect]
     Active Substance: MORPHINE
     Route: 037
  24. MORPHINE [Suspect]
     Active Substance: MORPHINE
     Route: 048
  25. MORPHINE [Suspect]
     Active Substance: MORPHINE
     Route: 037
  26. BUPIVACAINE [Suspect]
     Active Substance: BUPIVACAINE
     Indication: Pain management
     Route: 037
  27. HYDROMORPHONE [Suspect]
     Active Substance: HYDROMORPHONE
     Indication: Pain management
     Route: 037
  28. SERTRALINE [Concomitant]
     Active Substance: SERTRALINE HYDROCHLORIDE
     Indication: Depression
     Route: 065
  29. OLANZAPINE [Concomitant]
     Active Substance: OLANZAPINE
     Indication: Depression
     Route: 065
  30. KETAMINE [Concomitant]
     Active Substance: KETAMINE
     Indication: Depression
     Route: 065
  31. ZINECARD [Concomitant]
     Active Substance: DEXRAZOXANE HYDROCHLORIDE
     Indication: Anticoagulant therapy
     Route: 065
  32. DOXORUBICIN [Concomitant]
     Active Substance: DOXORUBICIN
     Indication: Anticoagulant therapy
     Route: 065

REACTIONS (2)
  - Lethargy [Unknown]
  - Drug ineffective [Unknown]
